FAERS Safety Report 9646560 (Version 1)
Quarter: 2013Q4

REPORT INFORMATION
  Report Type: Report from Study
  Country: US (occurrence: US)
  Receive Date: 20131025
  Receipt Date: 20131025
  Transmission Date: 20140711
  Serious: Yes (Other)
  Sender: FDA-Public Use
  Company Number: US-ABBVIE-13P-163-1159021-00

PATIENT
  Age: 86 Year
  Sex: Male

DRUGS (8)
  1. HUMIRA [Suspect]
     Indication: CROHN^S DISEASE
     Dates: start: 20130920
  2. CALCIUM [Concomitant]
     Indication: PRODUCT USED FOR UNKNOWN INDICATION
     Dosage: 2 PILLS DAILY
  3. MERCAPTOPURINE [Concomitant]
     Indication: PRODUCT USED FOR UNKNOWN INDICATION
     Dosage: 1.5 TABLETS DAILY
  4. ASACOL [Concomitant]
     Indication: PRODUCT USED FOR UNKNOWN INDICATION
  5. PREDNISONE [Concomitant]
     Indication: PRODUCT USED FOR UNKNOWN INDICATION
     Dosage: 10MG DAILY TAPERING
  6. METOPROLOL [Concomitant]
     Indication: CARDIAC DISORDER
     Dosage: AT SLEEP
  7. METOPROLOL [Concomitant]
     Indication: CARDIAC OPERATION
  8. SIMVASTATIN [Concomitant]
     Indication: BLOOD CHOLESTEROL
     Dosage: 10MG DAILY

REACTIONS (6)
  - Lip injury [Not Recovered/Not Resolved]
  - Face injury [Unknown]
  - Tooth fracture [Unknown]
  - Tooth injury [Unknown]
  - Dizziness [Unknown]
  - Fall [Unknown]
